FAERS Safety Report 23788331 (Version 2)
Quarter: 2024Q2

REPORT INFORMATION
  Report Type: Spontaneous
  Country: GB (occurrence: GB)
  Receive Date: 20240426
  Receipt Date: 20240603
  Transmission Date: 20240717
  Serious: Yes (Hospitalization, Other)
  Sender: FDA-Public Use
  Company Number: GB-MYLANLABS-2024M1032859

PATIENT
  Age: 42 Year
  Sex: Female
  Weight: 61 kg

DRUGS (7)
  1. CLOZARIL [Suspect]
     Active Substance: CLOZAPINE
     Indication: Schizophrenia
     Dosage: 450 MILLIGRAM, QD (ONCE DAILY) (NOCTE)
     Route: 048
     Dates: start: 20230628, end: 20240406
  2. BISOPROLOL [Concomitant]
     Active Substance: BISOPROLOL\BISOPROLOL FUMARATE
     Indication: Tachycardia
     Dosage: 2.5 MILLIGRAM, QD (ONCE DAILY)
     Route: 048
     Dates: start: 20240131, end: 20240408
  3. CHOLECALCIFEROL [Concomitant]
     Active Substance: CHOLECALCIFEROL
     Indication: Vitamin D deficiency
     Dosage: 800 INTERNATIONAL UNIT, QD (ONCE DAILY)
     Route: 048
     Dates: start: 20220722, end: 20240408
  4. FERROUS FUMARATE [Concomitant]
     Active Substance: FERROUS FUMARATE
     Indication: Iron deficiency anaemia
     Dosage: 210 MILLIGRAM, BID (TWICE DAILY)
     Route: 048
     Dates: start: 20220721, end: 20240320
  5. LANSOPRAZOLE [Concomitant]
     Active Substance: LANSOPRAZOLE
     Indication: Reflux gastritis
     Dosage: 15 MILLIGRAM, QD (ONCE DAILY)
     Route: 048
     Dates: start: 20230720, end: 20240409
  6. PROMETHAZINE [Concomitant]
     Active Substance: PROMETHAZINE HYDROCHLORIDE
     Indication: Agitation
     Dosage: 25 MILLIGRAM, PRN (AS NEEDED)
     Route: 048
     Dates: start: 20240405
  7. SENNOSIDES [Concomitant]
     Active Substance: SENNOSIDES
     Indication: Constipation
     Dosage: 7.5 MILLIGRAM, PRN (AS NEEDED)
     Route: 048
     Dates: start: 20230525

REACTIONS (5)
  - Hospitalisation [Unknown]
  - Mental impairment [Unknown]
  - Tachycardia [Recovered/Resolved]
  - Therapy cessation [Unknown]
  - Treatment noncompliance [Unknown]

NARRATIVE: CASE EVENT DATE: 20231201
